FAERS Safety Report 7545195-6 (Version None)
Quarter: 2011Q2

REPORT INFORMATION
  Report Type: 
  Country: None (occurrence: None)
  Receive Date: 20110614
  Receipt Date: 20110531
  Transmission Date: 20111010
  Serious: Yes (Hospitalization, Other)
  Sender: FDA-Public Use
  Company Number: NL-ELI_LILLY_AND_COMPANY-NL201012001946

PATIENT
  Sex: Female

DRUGS (28)
  1. FORTEO [Suspect]
     Indication: OSTEOPOROSIS
     Dosage: 20 UG, DAILY (1/D)
     Route: 058
     Dates: start: 20101202, end: 20101203
  2. COTRIM [Concomitant]
     Dosage: 160/800MG, UNKNOWN
     Route: 065
  3. VENLAFAXINE [Concomitant]
     Indication: DEPRESSION
     Dosage: 37.5 MG, UNKNOWN
     Route: 065
  4. VENLAFAXINE [Concomitant]
     Dosage: 75 MG, UNKNOWN
     Route: 065
  5. COLECALCIFEROL [Concomitant]
     Indication: VITAMIN D
     Dosage: 400 IU, UNKNOWN
     Route: 065
  6. DEXTRAN 70 [Concomitant]
     Dosage: 1/3MG/ML FL 15ML, UNKNOWN
     Route: 065
  7. DILTIAZEM [Concomitant]
     Indication: HYPERTENSION
     Dosage: 200 MG, UNKNOWN
     Route: 065
  8. ACETAMINOPHEN [Concomitant]
     Indication: PAIN
     Dosage: 500 MG, UNKNOWN
     Route: 065
  9. HYPROMELLOSE [Concomitant]
     Dosage: 1/3MG/ML FL 15ML, UNKNOWN
     Route: 065
  10. CICLESONIDE [Concomitant]
     Indication: CHRONIC OBSTRUCTIVE PULMONARY DISEASE
     Dosage: 160UG/DO 60 DO INH
     Route: 065
  11. DIPYRIDAMOL [Concomitant]
     Indication: CARDIAC DISORDER
     Dosage: 150 MG, UNKNOWN
     Route: 065
  12. PANTOPRAZOLE [Concomitant]
     Indication: PROPHYLAXIS
     Dosage: 40 MG, UNKNOWN
     Route: 065
  13. FENTANYL [Concomitant]
     Indication: PAIN
     Dosage: 25 UG, EVERY HOUR (GENERIC + DUROGESIC)
     Route: 065
  14. POLYETHYLENE GLYCOL [Concomitant]
     Indication: CONSTIPATION
     Dosage: UNK, UNKNOWN
     Route: 065
  15. PLANTAGO OVATA [Concomitant]
     Indication: CONSTIPATION
     Dosage: 3.4 G, UNKNOWN
     Route: 065
  16. CALCIUM CARBONATE [Concomitant]
     Indication: OSTEOPOROSIS
     Dosage: 1.25 G, UNKNOWN
     Route: 065
  17. OXYCODON [Concomitant]
     Dosage: 10 MG, UNKNOWN
     Route: 065
  18. FORTEO [Suspect]
     Dosage: 20 UG, DAILY (1/D)
     Dates: start: 20101206
  19. ASPIRIN [Concomitant]
     Indication: ANTICOAGULANT THERAPY
     Dosage: 80 MG, UNKNOWN
     Route: 065
  20. IBANDRONATE SODIUM [Concomitant]
     Indication: OSTEOPOROSIS
     Dosage: 150 MG, UNKNOWN
     Route: 065
  21. SIMVASTATIN [Concomitant]
     Indication: HYPERCHOLESTEROLAEMIA
     Dosage: 40 MG, UNKNOWN
     Route: 065
  22. TIOTROPIUM [Concomitant]
     Indication: CHRONIC OBSTRUCTIVE PULMONARY DISEASE
     Dosage: 2.5UG/DO PATR 60 DO INH, UNKNOWN
     Route: 065
  23. OXAZEPAM [Concomitant]
     Indication: FEELING OF RELAXATION
     Dosage: 10 MG, UNKNOWN
     Route: 065
  24. HYDROCHLOROTHIAZID [Concomitant]
     Indication: HYPERTENSION
     Dosage: 25 MG, UNKNOWN
     Route: 065
  25. DIPYRIDAMOL [Concomitant]
     Dosage: 200 MG, UNKNOWN
     Route: 065
  26. LERCANIDIPINE [Concomitant]
     Indication: HYPERTENSION
     Dosage: 10 MG, UNKNOWN
     Route: 065
  27. OXYCODON [Concomitant]
     Indication: PAIN
     Dosage: 5 MG, UNKNOWN
     Route: 065
  28. VALSARTAN [Concomitant]
     Indication: HYPERTENSION
     Dosage: 80 MG, UNKNOWN
     Route: 065

REACTIONS (7)
  - SPINAL COMPRESSION FRACTURE [None]
  - FALL [None]
  - CONFUSIONAL STATE [None]
  - EMBOLISM [None]
  - BACK DISORDER [None]
  - PAIN IN EXTREMITY [None]
  - PUBIS FRACTURE [None]
